FAERS Safety Report 13940820 (Version 3)
Quarter: 2017Q3

REPORT INFORMATION
  Report Type: Spontaneous
  Country: JP (occurrence: JP)
  Receive Date: 20170906
  Receipt Date: 20170927
  Transmission Date: 20171127
  Serious: Yes (Hospitalization)
  Sender: FDA-Public Use
  Company Number: JP-GILEAD-2017-0291581

PATIENT
  Age: 76 Year
  Sex: Female

DRUGS (18)
  1. SENNA [Concomitant]
     Active Substance: SENNA LEAF\SENNOSIDES\SENNOSIDES A AND B
     Dosage: 2 DF, QD
  2. GASLON [Concomitant]
     Active Substance: IRSOGLADINE MALEATE
     Dosage: 1 DF, BID
  3. DIFENIDOL [Concomitant]
     Dosage: 1 DF, TID
  4. ADAIR [Concomitant]
     Dosage: 1 DF, BID
     Route: 055
  5. TELMISARTAN. [Concomitant]
     Active Substance: TELMISARTAN
     Dosage: 40 MG, QD
  6. CELECOX [Concomitant]
     Active Substance: CELECOXIB
     Dosage: 100 MG, BID
  7. SULPIRIDE [Concomitant]
     Active Substance: SULPIRIDE
     Dosage: 100 MG, QD
  8. OMEPRAZOLE. [Concomitant]
     Active Substance: OMEPRAZOLE
     Dosage: 20 MG, QD
  9. URILOSIN [Concomitant]
     Dosage: 10 MG, BID
  10. RISPERIDONE. [Concomitant]
     Active Substance: RISPERIDONE
     Dosage: 2 MG, QD
  11. SENNARIDE [Concomitant]
     Active Substance: SENNOSIDES A AND B
     Dosage: 24 MG, QD
  12. AMBROXOL [Concomitant]
     Active Substance: AMBROXOL
     Dosage: 15 MG, BID
  13. METOCLOPRAMIDE. [Concomitant]
     Active Substance: METOCLOPRAMIDE
     Dosage: 1 DF, TID
  14. REBAMIPIDE [Concomitant]
     Active Substance: REBAMIPIDE
     Dosage: 1 DF, BID
  15. MOHRUS [Concomitant]
     Active Substance: KETOPROFEN
     Dosage: UNK
  16. BENZALIN                           /00036201/ [Concomitant]
     Active Substance: NITRAZEPAM
     Dosage: 5 MG, QD
  17. GOODMIN [Concomitant]
     Active Substance: BROTIZOLAM
     Dosage: 0.25 MG, QD
  18. HARVONI [Suspect]
     Active Substance: LEDIPASVIR\SOFOSBUVIR
     Indication: PRODUCT USED FOR UNKNOWN INDICATION
     Dosage: 1 DF, QD
     Route: 065
     Dates: start: 20170711

REACTIONS (4)
  - Jaundice [Unknown]
  - Vertigo [Recovered/Resolved]
  - Vomiting [Unknown]
  - Nausea [Unknown]

NARRATIVE: CASE EVENT DATE: 20170831
